FAERS Safety Report 7735748-4 (Version None)
Quarter: 2011Q3

REPORT INFORMATION
  Report Type: 
  Country: None (occurrence: None)
  Receive Date: 20110908
  Receipt Date: 20110830
  Transmission Date: 20111222
  Serious: Yes (Hospitalization)
  Sender: FDA-Public Use
  Company Number: US-BIOGENIDEC-2011BI023949

PATIENT
  Age: 31 Year
  Sex: Female

DRUGS (2)
  1. AVONEX [Suspect]
     Indication: MULTIPLE SCLEROSIS
     Route: 030
     Dates: start: 20090901, end: 20110523
  2. AVONEX [Suspect]
     Route: 030
     Dates: start: 20061001, end: 20080801

REACTIONS (3)
  - ANXIETY [None]
  - MENTAL DISORDER [None]
  - DEPRESSION [None]
